FAERS Safety Report 14638426 (Version 1)
Quarter: 2018Q1

REPORT INFORMATION
  Report Type: Spontaneous
  Country: DE (occurrence: DE)
  Receive Date: 20180314
  Receipt Date: 20180314
  Transmission Date: 20180509
  Serious: Yes (Other)
  Sender: FDA-Public Use
  Company Number: DE-ELI_LILLY_AND_COMPANY-DE201803003310

PATIENT
  Age: 78 Year
  Sex: Female

DRUGS (5)
  1. DEXAMETHASON                       /00016002/ [Concomitant]
     Active Substance: DEXAMETHASONE
     Indication: PREMEDICATION
     Dosage: UNK, UNKNOWN
     Route: 065
  2. LARTRUVO [Suspect]
     Active Substance: OLARATUMAB
     Dosage: 190 ML, OTHER
     Route: 042
  3. PARACETAMOL [Concomitant]
     Active Substance: ACETAMINOPHEN
     Indication: PREMEDICATION
     Dosage: UNK, UNKNOWN
     Route: 065
  4. LARTRUVO [Suspect]
     Active Substance: OLARATUMAB
     Indication: LIPOSARCOMA
     Dosage: 500 MG, OTHER
     Route: 042
  5. ANTIHISTAMIN [Concomitant]
     Active Substance: ANTIHISTAMINES NOS
     Indication: PREMEDICATION
     Dosage: UNK, UNKNOWN
     Route: 065

REACTIONS (3)
  - Syncope [Unknown]
  - Off label use [Unknown]
  - Blood pressure decreased [Unknown]
